FAERS Safety Report 8617767-9 (Version None)
Quarter: 2012Q3

REPORT INFORMATION
  Report Type: 
  Country: None (occurrence: None)
  Receive Date: 20120824
  Receipt Date: 20120430
  Transmission Date: 20120928
  Serious: No
  Sender: FDA-Public Use
  Company Number: US-ASTRAZENECA-2012SE14099

PATIENT
  Age: 45 Year
  Sex: Female

DRUGS (2)
  1. SYMBICORT [Suspect]
     Indication: COUGH
     Dosage: UNKNOWN FREQUENCY.
     Route: 055
  2. NEXIUM [Suspect]
     Route: 048

REACTIONS (4)
  - SINUSITIS [None]
  - OFF LABEL USE [None]
  - BRONCHITIS [None]
  - COUGH [None]
